FAERS Safety Report 8956812 (Version 2)
Quarter: 2012Q4

REPORT INFORMATION
  Report Type: Spontaneous
  Country: US (occurrence: None)
  Receive Date: 20121130
  Receipt Date: 20121130
  Transmission Date: 20130627
  Serious: Yes (Hospitalization)
  Sender: FDA-Public Use
  Company Number: TPA2012A09163

PATIENT
  Age: 71 Year
  Sex: Female
  Weight: 68.04 kg

DRUGS (10)
  1. DEXILANT [Suspect]
     Indication: GERD
     Route: 048
     Dates: start: 20121026, end: 20121026
  2. METFORMIN (METFORMIN) [Concomitant]
  3. ACCUPRIL (QUINAPRIL HYDROCHLORIDE) [Concomitant]
  4. METOPROLOL (METOPROLOL) [Concomitant]
  5. LIPITOR (ATORVASTATIN CALCIUM) [Concomitant]
  6. ASA BABY (ACETYLSALICYLIC ACID) [Concomitant]
  7. VITAMIN C (ASCORBIC ACID) [Concomitant]
  8. VITAMIN E (HERBAL OIL NOS) [Concomitant]
  9. CALCIUM (CALCIUM) [Concomitant]
  10. TYLENOL (PARACETAMOL) [Concomitant]

REACTIONS (8)
  - Dizziness [None]
  - Photopsia [None]
  - Syncope [None]
  - Toxicity to various agents [None]
  - Erythema [None]
  - Abdominal pain upper [None]
  - Blood pressure decreased [None]
  - Bowel movement irregularity [None]
